FAERS Safety Report 8551396-0 (Version None)
Quarter: 2012Q3

REPORT INFORMATION
  Report Type: 
  Country: None (occurrence: None)
  Receive Date: 20120730
  Receipt Date: 20120723
  Transmission Date: 20120928
  Serious: Yes (Life-Threatening)
  Sender: FDA-Public Use
  Company Number: JP-009507513-1207JPN010150

PATIENT

DRUGS (3)
  1. ULTIVA [Suspect]
     Indication: ANALGESIC THERAPY
     Dosage: UNK UNK, ONCE
     Route: 051
     Dates: start: 20120712, end: 20120712
  2. PROPOFOL [Suspect]
     Indication: LIGHT ANAESTHESIA
     Route: 051
     Dates: start: 20120712, end: 20120712
  3. ROCURONIUM BROMIDE [Suspect]
     Route: 042
     Dates: start: 20120712, end: 20120712

REACTIONS (3)
  - BLOOD PRESSURE DECREASED [None]
  - ANAPHYLACTIC REACTION [None]
  - PILOERECTION [None]
